FAERS Safety Report 14828441 (Version 3)
Quarter: 2018Q2

REPORT INFORMATION
  Report Type: Report from Study
  Country: CO (occurrence: CO)
  Receive Date: 20180430
  Receipt Date: 20180521
  Transmission Date: 20180711
  Serious: Yes (Hospitalization, Other)
  Sender: FDA-Public Use
  Company Number: CO-JNJFOC-20180424871

PATIENT
  Age: 67 Year
  Sex: Female
  Weight: 69 kg

DRUGS (1)
  1. DARZALEX [Suspect]
     Active Substance: DARATUMUMAB
     Indication: PLASMA CELL MYELOMA
     Route: 042
     Dates: start: 20180328

REACTIONS (16)
  - Vomiting [Recovering/Resolving]
  - Anaemia [Recovering/Resolving]
  - Depressed mood [Recovering/Resolving]
  - Nasal congestion [Recovering/Resolving]
  - Sneezing [Recovering/Resolving]
  - Eye haemorrhage [Recovering/Resolving]
  - Oxygen therapy [Unknown]
  - Disorientation [Recovering/Resolving]
  - Diarrhoea [Recovering/Resolving]
  - Thrombocytopenia [Recovering/Resolving]
  - Cough [Recovering/Resolving]
  - Infusion related reaction [Unknown]
  - Dehydration [Recovering/Resolving]
  - Decreased appetite [Recovering/Resolving]
  - Asthenia [Recovering/Resolving]
  - Oropharyngeal plaque [Recovering/Resolving]

NARRATIVE: CASE EVENT DATE: 201804
